FAERS Safety Report 25847069 (Version 1)
Quarter: 2025Q3

REPORT INFORMATION
  Report Type: Spontaneous
  Country: JP (occurrence: JP)
  Receive Date: 20250925
  Receipt Date: 20250925
  Transmission Date: 20251020
  Serious: Yes (Other)
  Sender: MERCK SHARP & DOHME LLC
  Company Number: JP-009507513-2330721

PATIENT
  Age: 77 Year
  Sex: Female

DRUGS (5)
  1. KEYTRUDA [Suspect]
     Active Substance: PEMBROLIZUMAB
     Indication: Endometrial adenocarcinoma
     Route: 065
  2. LENVIMA [Suspect]
     Active Substance: LENVATINIB
     Indication: Endometrial adenocarcinoma
     Route: 048
  3. LENVIMA [Suspect]
     Active Substance: LENVATINIB
     Indication: Endometrial adenocarcinoma
     Route: 048
  4. LENVIMA [Suspect]
     Active Substance: LENVATINIB
     Indication: Endometrial adenocarcinoma
     Route: 048
  5. LENVIMA [Suspect]
     Active Substance: LENVATINIB
     Indication: Endometrial adenocarcinoma
     Route: 048

REACTIONS (5)
  - Malignant neoplasm progression [Unknown]
  - Haemorrhage [Unknown]
  - Immune-mediated adrenal insufficiency [Unknown]
  - Proteinuria [Unknown]
  - Product use issue [Unknown]
